FAERS Safety Report 23747460 (Version 1)
Quarter: 2024Q2

REPORT INFORMATION
  Report Type: Spontaneous
  Country: US (occurrence: None)
  Receive Date: 20240415
  Receipt Date: 20240415
  Transmission Date: 20240716
  Serious: No
  Sender: FDA-Public Use
  Company Number: None

PATIENT
  Age: 30 Year
  Sex: Female

DRUGS (7)
  1. TALTZ [Suspect]
     Active Substance: IXEKIZUMAB
     Indication: Psoriatic arthropathy
     Dosage: OTHER FREQUENCY : 160 MG ONCE;?
     Route: 058
     Dates: start: 20240304, end: 20240415
  2. VITAMINS [Concomitant]
     Active Substance: VITAMINS
  3. FAMOTIDINE [Concomitant]
     Active Substance: FAMOTIDINE
  4. FLUOXETINE [Concomitant]
     Active Substance: FLUOXETINE HYDROCHLORIDE
  5. LEFLUNOMIDE [Concomitant]
     Active Substance: LEFLUNOMIDE
  6. ENBREL [Suspect]
     Active Substance: ETANERCEPT
  7. HUMIRA [Suspect]
     Active Substance: ADALIMUMAB

REACTIONS (4)
  - Injection site reaction [None]
  - Dizziness [None]
  - Nausea [None]
  - Diarrhoea [None]

NARRATIVE: CASE EVENT DATE: 20240415
